FAERS Safety Report 15458219 (Version 10)
Quarter: 2025Q4

REPORT INFORMATION
  Report Type: Spontaneous
  Country: GB (occurrence: GB)
  Receive Date: 20181003
  Receipt Date: 20251212
  Transmission Date: 20260118
  Serious: Yes (Other)
  Sender: TEVA
  Company Number: GB-TEVA-2018-GB-959292

PATIENT
  Age: 7 Month
  Sex: Female

DRUGS (18)
  1. CYCLOSPORINE [Suspect]
     Active Substance: CYCLOSPORINE
     Indication: Prophylaxis against graft versus host disease
     Route: 065
  2. CYCLOSPORINE [Suspect]
     Active Substance: CYCLOSPORINE
     Indication: Prophylaxis against graft versus host disease
     Route: 065
     Dates: start: 2012
  3. ALEMTUZUMAB [Suspect]
     Active Substance: ALEMTUZUMAB
     Indication: Bone marrow conditioning regimen
     Dosage: LOW DOSE, FIRST TRANSPLANT: AGE 7 MONTHS
     Route: 065
     Dates: start: 2012, end: 2013
  4. ALEMTUZUMAB [Suspect]
     Active Substance: ALEMTUZUMAB
     Indication: Bone marrow conditioning regimen
     Dosage: SECOND TRANSPLANT: AGE 18 MONTHS
     Route: 065
     Dates: start: 2014, end: 2014
  5. MYCOPHENOLATE MOFETIL [Suspect]
     Active Substance: MYCOPHENOLATE MOFETIL
     Indication: Prophylaxis against graft versus host disease
     Dosage: DURING 1ST TRANSPLANTATION
     Route: 065
     Dates: start: 2012
  6. MYCOPHENOLATE MOFETIL [Suspect]
     Active Substance: MYCOPHENOLATE MOFETIL
     Indication: Prophylaxis against graft versus host disease
     Dosage: DURING 2ND TRANSPLANTATION
     Route: 065
     Dates: start: 2013
  7. HYDROCORTISONE ACETATE [Concomitant]
     Active Substance: HYDROCORTISONE ACETATE
     Indication: Immunosuppressant drug therapy
     Route: 065
     Dates: start: 201509, end: 201510
  8. METHYLPREDNISOLONE [Suspect]
     Active Substance: METHYLPREDNISOLONE
     Indication: Immunosuppressant drug therapy
     Dosage: DOSE AT THE TIME OF FIRST TRANSPLANT (AGE OF 18 MONTHS)
     Route: 065
     Dates: end: 2015
  9. METHYLPREDNISOLONE [Suspect]
     Active Substance: METHYLPREDNISOLONE
     Indication: Immunosuppressant drug therapy
     Dosage: SECOND TRANSPLANT
     Route: 065
  10. TREOSULFAN [Suspect]
     Active Substance: TREOSULFAN
     Indication: Immunosuppressant drug therapy
     Dosage: DOSAGE: 36 G/M^2 36G/M2: FIRST TRANSPLANT: AGE 7 MONTHS
     Route: 065
     Dates: start: 2012, end: 2014
  11. THIOTEPA [Concomitant]
     Active Substance: THIOTEPA
     Indication: Bone marrow conditioning regimen
     Route: 065
  12. FLUDARABINE [Suspect]
     Active Substance: FLUDARABINE PHOSPHATE
     Indication: Immunosuppressant drug therapy
     Dosage: FIRST TRANSPLANT: AGE 7 MONTHS
     Route: 065
     Dates: start: 2012, end: 2013
  13. FLUDARABINE [Suspect]
     Active Substance: FLUDARABINE PHOSPHATE
     Indication: Immunosuppressant drug therapy
     Dosage: SECOND TRANSPLANT: AGE 18 MONTHS
     Route: 065
     Dates: start: 2014, end: 2014
  14. TACROLIMUS [Concomitant]
     Active Substance: TACROLIMUS
     Indication: Prophylaxis against graft versus host disease
     Route: 065
  15. TACROLIMUS [Concomitant]
     Active Substance: TACROLIMUS
     Indication: Prophylaxis against graft versus host disease
     Route: 065
     Dates: start: 2013
  16. CIDOFOVIR [Concomitant]
     Active Substance: CIDOFOVIR
     Indication: Immunosuppressant drug therapy
     Route: 065
  17. INFLIXIMAB [Suspect]
     Active Substance: INFLIXIMAB
     Indication: Immunosuppressant drug therapy
     Dosage: DURING 1ST TRANSPLANTATION
     Route: 065
  18. INFLIXIMAB [Suspect]
     Active Substance: INFLIXIMAB
     Indication: Immunosuppressant drug therapy
     Dosage: DURING 2ND TRANSPLANTATION
     Route: 065

REACTIONS (8)
  - Acute graft versus host disease in skin [Not Recovered/Not Resolved]
  - Gastroenteritis norovirus [Recovered/Resolved]
  - Hypertension [Not Recovered/Not Resolved]
  - Thrombotic microangiopathy [Unknown]
  - Drug ineffective [Unknown]
  - Off label use [Unknown]
  - Rash [Not Recovered/Not Resolved]
  - Adenovirus infection [Recovered/Resolved]
